FAERS Safety Report 26034351 (Version 1)
Quarter: 2025Q4

REPORT INFORMATION
  Report Type: Spontaneous
  Country: US (occurrence: None)
  Receive Date: 20251111
  Receipt Date: 20251111
  Transmission Date: 20260118
  Serious: Yes (Hospitalization)
  Sender: FDA-CTU
  Company Number: None

PATIENT
  Sex: Male

DRUGS (11)
  1. LENALIDOMIDE [Suspect]
     Active Substance: LENALIDOMIDE
     Indication: Plasma cell myeloma
     Dosage: TAKE 1 CAPSULE BY MOUTH DAILY FOR 21 DAYS THEN OFF FOR 7 DAYS?
     Route: 048
     Dates: start: 20250708
  2. ASPIRIN TAB 325MG EC [Concomitant]
  3. BUPROPION TAB 150MG XL [Concomitant]
  4. COLACE CAP 100MG [Concomitant]
  5. DOXAZOSIN TAB 1MG [Concomitant]
  6. FENOFIBRATE CAP 43MG [Concomitant]
  7. GABAPENTIN [Concomitant]
     Active Substance: GABAPENTIN
  8. KRILL OIL CAP OMEGA-3 [Concomitant]
  9. LISINOP/HCTZ TAB 10-12.5 [Concomitant]
  10. MELATONIN CAP 10MG [Concomitant]
  11. METFORMIN [Concomitant]
     Active Substance: METFORMIN HYDROCHLORIDE

REACTIONS (2)
  - Fall [None]
  - Pneumonia [None]
